FAERS Safety Report 5258379-7 (Version None)
Quarter: 2007Q1

REPORT INFORMATION
  Report Type: 
  Country: None (occurrence: None)
  Receive Date: 20070308
  Receipt Date: 20070228
  Transmission Date: 20070707
  Serious: Yes (Other)
  Sender: FDA-Public Use
  Company Number: CHWYE940122DEC06

PATIENT
  Age: 49 Year
  Sex: Male

DRUGS (6)
  1. EFFEXOR [Suspect]
     Indication: DEPRESSION
     Dosage: 75 MG AND INCREASING DOSES
     Route: 048
     Dates: start: 20060721, end: 20060814
  2. EFFEXOR [Interacting]
     Route: 048
     Dates: start: 20060815
  3. OMEPRAZOLE [Concomitant]
     Route: 048
     Dates: start: 20060829
  4. REMERON [Interacting]
     Route: 048
     Dates: start: 20060912, end: 20061110
  5. REMERON [Interacting]
     Route: 048
     Dates: start: 20061111, end: 20070131
  6. REMERON [Interacting]
     Route: 048
     Dates: start: 20070201

REACTIONS (7)
  - ALANINE AMINOTRANSFERASE INCREASED [None]
  - ASPARTATE AMINOTRANSFERASE INCREASED [None]
  - BLOOD CHOLESTEROL INCREASED [None]
  - BLOOD TRIGLYCERIDES INCREASED [None]
  - DRUG INTERACTION [None]
  - DRUG LEVEL INCREASED [None]
  - GAMMA-GLUTAMYLTRANSFERASE INCREASED [None]
